FAERS Safety Report 16395577 (Version 1)
Quarter: 2019Q3

REPORT INFORMATION
  Report Type: Spontaneous
  Country: US (occurrence: US)
  Receive Date: 20190604
  Receipt Date: 20190604
  Transmission Date: 20191004
  Serious: Yes (Death, Hospitalization)
  Sender: FDA-Public Use
  Company Number: None

PATIENT
  Age: 51 Year
  Sex: Male
  Weight: 99.8 kg

DRUGS (1)
  1. USTEKINUMAB 120MG/26ML [Suspect]
     Active Substance: USTEKINUMAB
     Indication: CROHN^S DISEASE
     Dosage: FREQUENCY: ONCE
     Route: 041
     Dates: start: 20190522

REACTIONS (1)
  - Death [None]

NARRATIVE: CASE EVENT DATE: 20190522
